FAERS Safety Report 17427055 (Version 1)
Quarter: 2020Q1

REPORT INFORMATION
  Report Type: Report from Study
  Country: ZA (occurrence: ZA)
  Receive Date: 20200218
  Receipt Date: 20200218
  Transmission Date: 20200409
  Serious: Yes (Other)
  Sender: FDA-Public Use
  Company Number: ZA-ROCHE-2548375

PATIENT

DRUGS (3)
  1. DIAZEPAM. [Suspect]
     Active Substance: DIAZEPAM
     Indication: SEDATION
     Dosage: MAXIMUM OF 20 MG
     Route: 042
  2. MIDAZOLAM HYDROCHLORIDE. [Suspect]
     Active Substance: MIDAZOLAM HYDROCHLORIDE
     Indication: SEDATION
     Dosage: MAXIMUM OF 8 MG
     Route: 042
  3. PRILOCAINE HCL [Concomitant]
     Active Substance: PRILOCAINE
     Route: 065

REACTIONS (1)
  - Bradycardia [Unknown]
